FAERS Safety Report 21543219 (Version 2)
Quarter: 2023Q1

REPORT INFORMATION
  Report Type: Spontaneous
  Country: US (occurrence: US)
  Receive Date: 20221102
  Receipt Date: 20230207
  Transmission Date: 20230418
  Serious: No
  Sender: FDA-Public Use
  Company Number: US-SA-SAC20221101002277

PATIENT
  Sex: Female
  Weight: 58 kg

DRUGS (18)
  1. DUPIXENT [Suspect]
     Active Substance: DUPILUMAB
     Indication: Dermatitis atopic
     Dosage: 300 MG, QOW
     Route: 058
     Dates: start: 202110
  2. PREDNISONE [Concomitant]
     Active Substance: PREDNISONE
  3. CEPHALEXIN [Concomitant]
     Active Substance: CEPHALEXIN
  4. BETAMETHASONE DIPROPIONATE [Concomitant]
     Active Substance: BETAMETHASONE DIPROPIONATE
  5. TACROLIMUS [Concomitant]
     Active Substance: TACROLIMUS
  6. MINERALS\VITAMINS [Concomitant]
     Active Substance: MINERALS\VITAMINS
  7. CHOLECALCIFEROL\FISH OIL [Concomitant]
     Active Substance: CHOLECALCIFEROL\FISH OIL
  8. CALCIUM\CHOLECALCIFEROL [Concomitant]
     Active Substance: CALCIUM\CHOLECALCIFEROL
  9. VITAMIN D3 [Concomitant]
     Active Substance: CHOLECALCIFEROL
  10. KLONOPIN [Concomitant]
     Active Substance: CLONAZEPAM
  11. ZOLOFT [Concomitant]
     Active Substance: SERTRALINE HYDROCHLORIDE
  12. PROLIA [Concomitant]
     Active Substance: DENOSUMAB
  13. SIMVASTATIN [Concomitant]
     Active Substance: SIMVASTATIN
  14. DIDANOSINE [Concomitant]
     Active Substance: DIDANOSINE
     Dosage: UNK
  15. FLOEASE [Concomitant]
     Dosage: UNK
  16. MUCINEX [Concomitant]
     Active Substance: GUAIFENESIN
     Dosage: UNK
  17. AUGMENTIN [Concomitant]
     Active Substance: AMOXICILLIN\CLAVULANATE POTASSIUM
     Dosage: UNK
  18. MEDROL [Concomitant]
     Active Substance: METHYLPREDNISOLONE
     Dosage: UNK

REACTIONS (5)
  - Bronchitis chronic [Unknown]
  - COVID-19 [Unknown]
  - Bronchitis [Unknown]
  - Sinusitis [Unknown]
  - Upper respiratory tract infection [Unknown]
